FAERS Safety Report 6738909-6 (Version None)
Quarter: 2010Q2

REPORT INFORMATION
  Report Type: 
  Country: None (occurrence: None)
  Receive Date: 20100521
  Receipt Date: 20100513
  Transmission Date: 20101027
  Serious: Yes (Hospitalization)
  Sender: FDA-Public Use
  Company Number: 7004999

PATIENT
  Age: 52 Year
  Sex: Female
  Weight: 84 kg

DRUGS (2)
  1. REBIF [Suspect]
     Indication: MULTIPLE SCLEROSIS
     Dosage: 22 MCG, 3 IN 1 WK, SUBCUTANEOUS
     Route: 058
     Dates: start: 20020410
  2. SIBUTRAMINE (SIBUTRAMINE) [Concomitant]

REACTIONS (6)
  - HYPOCHROMASIA [None]
  - INTERVERTEBRAL DISC PROTRUSION [None]
  - MICROCYTOSIS [None]
  - NEPHROLITHIASIS [None]
  - SURGICAL FAILURE [None]
  - WEIGHT INCREASED [None]
